FAERS Safety Report 14113197 (Version 1)
Quarter: 2017Q4

REPORT INFORMATION
  Report Type: Report from Study
  Country: ES (occurrence: ES)
  Receive Date: 20171023
  Receipt Date: 20171023
  Transmission Date: 20180321
  Serious: Yes (Other)
  Sender: FDA-Public Use
  Company Number: ES-ADIENNEP-2017AD000277

PATIENT
  Sex: Male

DRUGS (3)
  1. BUSULFAN. [Suspect]
     Active Substance: BUSULFAN
  2. CYTARABINE. [Suspect]
     Active Substance: CYTARABINE
  3. THIOTEPA. [Suspect]
     Active Substance: THIOTEPA

REACTIONS (1)
  - Fungal infection [Recovered/Resolved]
